FAERS Safety Report 8056209-1 (Version None)
Quarter: 2012Q1

REPORT INFORMATION
  Report Type: 
  Country: None (occurrence: None)
  Receive Date: 20120119
  Receipt Date: 20120109
  Transmission Date: 20120608
  Serious: Yes (Other)
  Sender: FDA-Public Use
  Company Number: US-BAYER-2011-038816

PATIENT
  Sex: Female
  Weight: 73.469 kg

DRUGS (13)
  1. YAZ [Suspect]
     Indication: PREMENSTRUAL SYNDROME
  2. AMPICILLIN [Concomitant]
     Dosage: UNK
     Dates: start: 20020601
  3. POTASSIUM CHLORIDE [Concomitant]
  4. FUROSEMIDE [Concomitant]
     Dosage: UNK
     Dates: start: 20020601
  5. ALOE VERA [Concomitant]
     Dosage: UNK
     Dates: start: 20020501, end: 20020801
  6. +#8220;GALLBLADDER FORMULA+#8221; [Concomitant]
     Dosage: UNK
     Dates: start: 20020501, end: 20020801
  7. FIBERCON [Concomitant]
     Dosage: UNK
     Dates: start: 20020701
  8. VIOXX [Concomitant]
     Dosage: UNK
     Dates: start: 20020701
  9. CRATAEGUS [Concomitant]
     Dosage: UNK
     Dates: start: 20020501, end: 20020601
  10. YAZ [Suspect]
     Indication: CONTRACEPTION
     Dosage: UNK
     Dates: start: 20020501, end: 20090401
  11. YAZ [Suspect]
     Indication: ACNE
  12. LISINOPRIL [Concomitant]
     Dosage: UNK
     Dates: start: 20020601
  13. MICRO-K [Concomitant]
     Dosage: UNK
     Dates: start: 20020601

REACTIONS (4)
  - PAIN [None]
  - ANHEDONIA [None]
  - GALLBLADDER DISORDER [None]
  - ANXIETY [None]
